FAERS Safety Report 12206751 (Version 2)
Quarter: 2016Q2

REPORT INFORMATION
  Report Type: Report from Study
  Country: BR (occurrence: BR)
  Receive Date: 20160324
  Receipt Date: 20160420
  Transmission Date: 20160815
  Serious: Yes (Life-Threatening, Hospitalization, Other)
  Sender: FDA-Public Use
  Company Number: BR-ROCHE-1587796

PATIENT
  Age: 46 Year
  Sex: Female
  Weight: 53 kg

DRUGS (9)
  1. XOLAIR [Suspect]
     Active Substance: OMALIZUMAB
     Indication: ASTHMA
     Route: 058
     Dates: start: 200506, end: 2012
  2. OXYGEN. [Concomitant]
     Active Substance: OXYGEN
  3. INFLUENZA VACCINE [Suspect]
     Active Substance: INFLUENZA VIRUS VACCINE
     Indication: IMMUNISATION
     Route: 065
  4. RIVOTRIL [Concomitant]
     Active Substance: CLONAZEPAM
     Route: 065
  5. XOLAIR [Suspect]
     Active Substance: OMALIZUMAB
     Dosage: SINCE ONE YEARS AGO, 2 AMPOULES PER MONTH
     Route: 058
  6. SPIRIVA [Concomitant]
     Active Substance: TIOTROPIUM BROMIDE MONOHYDRATE
  7. IPRATROPIUM BROMIDE. [Concomitant]
     Active Substance: IPRATROPIUM BROMIDE
  8. FORTAL [Concomitant]
  9. XOLAIR [Suspect]
     Active Substance: OMALIZUMAB
     Indication: GASTROINTESTINAL DISORDER
     Dosage: ONE DOSE IN EACH ARM
     Route: 058
     Dates: start: 201411, end: 201511

REACTIONS (28)
  - Asthma [Recovering/Resolving]
  - Fatigue [Not Recovered/Not Resolved]
  - Fatigue [Recovering/Resolving]
  - Drug ineffective [Unknown]
  - Abasia [Recovering/Resolving]
  - Influenza [Recovering/Resolving]
  - Anxiety [Recovering/Resolving]
  - Malaise [Recovered/Resolved]
  - Dry mouth [Not Recovered/Not Resolved]
  - Irritability [Recovering/Resolving]
  - Dysphonia [Not Recovered/Not Resolved]
  - Swelling [Recovering/Resolving]
  - Lung disorder [Not Recovered/Not Resolved]
  - Product use issue [Unknown]
  - Nasopharyngitis [Recovered/Resolved]
  - Urinary tract infection [Recovering/Resolving]
  - General physical health deterioration [Not Recovered/Not Resolved]
  - Malaise [Recovered/Resolved]
  - Asthmatic crisis [Not Recovered/Not Resolved]
  - Dry mouth [Recovered/Resolved]
  - Anger [Unknown]
  - Dyspnoea [Recovering/Resolving]
  - Asthenia [Recovered/Resolved]
  - Weight decreased [Recovering/Resolving]
  - Coma [Not Recovered/Not Resolved]
  - Bone disorder [Not Recovered/Not Resolved]
  - Asphyxia [Recovering/Resolving]
  - Pneumonia [Recovered/Resolved]

NARRATIVE: CASE EVENT DATE: 201412
